FAERS Safety Report 4348229-5 (Version None)
Quarter: 2004Q1

REPORT INFORMATION
  Report Type: 
  Country: None (occurrence: None)
  Receive Date: 20040325
  Receipt Date: 20031124
  Transmission Date: 20041129
  Serious: No
  Sender: FDA-Public Use
  Company Number: USA031050873

PATIENT
  Age: 76 Year
  Sex: Female

DRUGS (5)
  1. FORTEO [Suspect]
     Indication: OSTEOPOROSIS
     Dates: start: 20030919, end: 20031114
  2. COUMADIN [Concomitant]
  3. LISINOPRIL [Concomitant]
  4. PROMETRIUM [Concomitant]
  5. ESTROGEN NOS [Concomitant]

REACTIONS (2)
  - ABNORMAL FAECES [None]
  - CONSTIPATION [None]
